FAERS Safety Report 24373167 (Version 1)
Quarter: 2024Q3

REPORT INFORMATION
  Report Type: Spontaneous
  Country: US (occurrence: US)
  Receive Date: 20240927
  Receipt Date: 20240927
  Transmission Date: 20241016
  Serious: No
  Sender: HETERO
  Company Number: US-HETERO-HET2024US03348

PATIENT
  Age: 56 Year
  Sex: Female
  Weight: 52.1 kg

DRUGS (1)
  1. VALACYCLOVIR [Suspect]
     Active Substance: VALACYCLOVIR HYDROCHLORIDE
     Indication: Herpes zoster
     Dosage: 500 MILLIGRAM, QD, 1000 MG TABLET WAS CONSUMED BY BREAKING IT INTO HALF
     Route: 048
     Dates: start: 20240917

REACTIONS (4)
  - Brain fog [Recovering/Resolving]
  - Hot flush [Recovering/Resolving]
  - Headache [Not Recovered/Not Resolved]
  - Hypersensitivity [Recovering/Resolving]

NARRATIVE: CASE EVENT DATE: 20240917
